FAERS Safety Report 18900265 (Version 1)
Quarter: 2021Q1

REPORT INFORMATION
  Report Type: Spontaneous
  Country: US (occurrence: US)
  Receive Date: 20210217
  Receipt Date: 20210217
  Transmission Date: 20210420
  Serious: No
  Sender: FDA-Public Use
  Company Number: US-B.I. PHARMACEUTICALS,INC./RIDGEFIELD-2021-BI-082656

PATIENT
  Age: 72 Year
  Sex: Female

DRUGS (4)
  1. SPIRIVA RESPIMAT [Suspect]
     Active Substance: TIOTROPIUM BROMIDE
     Indication: MULTIPLE ALLERGIES
     Dosage: 2.5MCG, 2 PUFFS ONCE DAILY
     Route: 065
     Dates: start: 201908
  2. NUCALA [Concomitant]
     Active Substance: MEPOLIZUMAB
     Indication: EOSINOPHILIA
     Dosage: 100MG/ML, ONCE PER MONTH
     Route: 065
  3. ALBUTEROL SULFATE. [Concomitant]
     Active Substance: ALBUTEROL SULFATE
     Indication: MULTIPLE ALLERGIES
     Dosage: 90MCG PRN
     Route: 065
  4. BUDESONIDE;FORMOTEROL [Concomitant]
     Active Substance: BUDESONIDE\FORMOTEROL
     Indication: MULTIPLE ALLERGIES
     Dosage: 80/4.5MCG, 2 PUFFS BID

REACTIONS (6)
  - Peripheral swelling [Recovering/Resolving]
  - Poor quality sleep [Not Recovered/Not Resolved]
  - Arthropod sting [Recovering/Resolving]
  - Peripheral swelling [Not Recovered/Not Resolved]
  - Off label use [Unknown]
  - Osteoporosis [Not Recovered/Not Resolved]

NARRATIVE: CASE EVENT DATE: 2020
